FAERS Safety Report 24689055 (Version 1)
Quarter: 2024Q4

REPORT INFORMATION
  Report Type: Report from Study
  Country: US (occurrence: US)
  Receive Date: 20241203
  Receipt Date: 20241203
  Transmission Date: 20250114
  Serious: Yes (Disabling)
  Sender: ALEXION PHARMACEUTICALS
  Company Number: US-AstraZeneca-CH-00755369A

PATIENT

DRUGS (4)
  1. CAPIVASERTIB [Suspect]
     Active Substance: CAPIVASERTIB
  2. CAPIVASERTIB [Suspect]
     Active Substance: CAPIVASERTIB
  3. CAPIVASERTIB [Suspect]
     Active Substance: CAPIVASERTIB
  4. CAPIVASERTIB [Suspect]
     Active Substance: CAPIVASERTIB

REACTIONS (5)
  - Malaise [Unknown]
  - Bone disorder [Unknown]
  - Decreased activity [Unknown]
  - Product dose omission issue [Unknown]
  - Bone pain [Unknown]
